FAERS Safety Report 24743425 (Version 3)
Quarter: 2025Q2

REPORT INFORMATION
  Report Type: Spontaneous
  Country: US (occurrence: US)
  Receive Date: 20241217
  Receipt Date: 20250403
  Transmission Date: 20250717
  Serious: No
  Sender: MERCK SHARP AND DOHME
  Company Number: US-009507513-2412USA003527

PATIENT
  Sex: Female
  Weight: 103.9 kg

DRUGS (30)
  1. WINREVAIR [Suspect]
     Active Substance: SOTATERCEPT-CSRK
  2. WINREVAIR [Suspect]
     Active Substance: SOTATERCEPT-CSRK
  3. WINREVAIR [Suspect]
     Active Substance: SOTATERCEPT-CSRK
  4. WINREVAIR [Suspect]
     Active Substance: SOTATERCEPT-CSRK
  5. WINREVAIR [Suspect]
     Active Substance: SOTATERCEPT-CSRK
  6. WINREVAIR [Suspect]
     Active Substance: SOTATERCEPT-CSRK
  7. WINREVAIR [Suspect]
     Active Substance: SOTATERCEPT-CSRK
  8. WINREVAIR [Suspect]
     Active Substance: SOTATERCEPT-CSRK
  9. REMODULIN [Concomitant]
     Active Substance: TREPROSTINIL
     Indication: Pulmonary arterial hypertension
     Route: 041
     Dates: start: 20180628
  10. REMODULIN [Concomitant]
     Active Substance: TREPROSTINIL
     Indication: Pulmonary arterial hypertension
     Route: 041
  11. REMODULIN [Concomitant]
     Active Substance: TREPROSTINIL
     Indication: Pulmonary arterial hypertension
     Route: 041
  12. SPIRIVA [Concomitant]
     Active Substance: TIOTROPIUM BROMIDE MONOHYDRATE
  13. CHONDROITIN SULFATE (BOVINE)\GLUCOSAMINE HYDROCHLORIDE [Concomitant]
     Active Substance: CHONDROITIN SULFATE (BOVINE)\GLUCOSAMINE HYDROCHLORIDE
  14. POTASSIUM CHLORIDE [Concomitant]
     Active Substance: POTASSIUM CHLORIDE
  15. TADALAFIL [Concomitant]
     Active Substance: TADALAFIL
  16. CLONAZEPAM [Concomitant]
     Active Substance: CLONAZEPAM
  17. VITAMIN C [Concomitant]
     Active Substance: ASCORBIC ACID
  18. IMODIUM A-D [Concomitant]
     Active Substance: LOPERAMIDE HYDROCHLORIDE
  19. PREVACID [Concomitant]
     Active Substance: LANSOPRAZOLE
  20. PROAIR HFA [Concomitant]
     Active Substance: ALBUTEROL SULFATE
  21. ONE A DAY WOMEN^S [ASCORBIC ACID;BETACAROTENE;BIOTIN;CALCIUM CARBON... [Concomitant]
  22. TRAZODONE HCL [Concomitant]
     Active Substance: TRAZODONE HYDROCHLORIDE
  23. PAROXETINE HYDROCHLORIDE [Concomitant]
     Active Substance: PAROXETINE HYDROCHLORIDE
  24. SIMVASTATIN [Concomitant]
     Active Substance: SIMVASTATIN
  25. OXYGEN [Concomitant]
     Active Substance: OXYGEN
  26. SPIRONOLACTONE [Concomitant]
     Active Substance: SPIRONOLACTONE
  27. CALCIUM [Concomitant]
     Active Substance: CALCIUM
  28. TORSEMIDE [Concomitant]
     Active Substance: TORSEMIDE
  29. VITAMIN D2 [Concomitant]
     Active Substance: ERGOCALCIFEROL
  30. MACULAR HEALTH FORMULA [Concomitant]

REACTIONS (4)
  - Injection site rash [Unknown]
  - Feeling abnormal [Unknown]
  - Fatigue [Unknown]
  - Weight increased [Unknown]
